FAERS Safety Report 4995085-8 (Version None)
Quarter: 2006Q2

REPORT INFORMATION
  Report Type: 
  Country: None (occurrence: None)
  Receive Date: 20060503
  Receipt Date: 20060420
  Transmission Date: 20061013
  Serious: Yes (Death, Hospitalization)
  Sender: FDA-Public Use
  Company Number: 200612407BWH

PATIENT
  Age: 74 Year
  Sex: Female

DRUGS (2)
  1. TRASYLOL [Suspect]
     Indication: AORTIC VALVE REPLACEMENT
     Dosage: SEE IMAGE
     Route: 042
     Dates: start: 20040804
  2. TRASYLOL [Suspect]
     Indication: AORTIC VALVE REPLACEMENT
     Dosage: SEE IMAGE
     Route: 042
     Dates: start: 20040804

REACTIONS (5)
  - ANAPHYLACTIC REACTION [None]
  - CARDIAC PROCEDURE COMPLICATION [None]
  - IATROGENIC INJURY [None]
  - ORGAN FAILURE [None]
  - SURGICAL PROCEDURE REPEATED [None]
